FAERS Safety Report 17892112 (Version 2)
Quarter: 2020Q3

REPORT INFORMATION
  Report Type: Report from Study
  Country: CO (occurrence: CO)
  Receive Date: 20200612
  Receipt Date: 20200616
  Transmission Date: 20201104
  Serious: Yes (Other)
  Sender: FDA-Public Use
  Company Number: NVSC2020CO164275

PATIENT
  Age: 80 Year
  Sex: Male
  Weight: 73 kg

DRUGS (3)
  1. JARDIANCE DUO [Concomitant]
     Active Substance: EMPAGLIFLOZIN\METFORMIN HYDROCHLORIDE
     Indication: DIABETES MELLITUS
     Dosage: 1 DF, QD (12.5 MG / 1000 MG)
     Route: 048
  2. AMLODIPINE BESILATE [Suspect]
     Active Substance: AMLODIPINE BESYLATE
     Indication: ARRHYTHMIA
     Dosage: 1 DF, QD
     Route: 048
  3. DIOVAN [Suspect]
     Active Substance: VALSARTAN
     Indication: HYPERTENSION
     Dosage: 1 DF, QD (STARTED MANY YEARS AGO)
     Route: 048

REACTIONS (1)
  - Immune thrombocytopenia [Unknown]

NARRATIVE: CASE EVENT DATE: 202002
